FAERS Safety Report 14899020 (Version 2)
Quarter: 2018Q2

REPORT INFORMATION
  Report Type: Spontaneous
  Country: FR (occurrence: FR)
  Receive Date: 20180516
  Receipt Date: 20180612
  Transmission Date: 20180711
  Serious: Yes (Hospitalization)
  Sender: FDA-Public Use
  Company Number: FR-ABBVIE-18K-056-2356090-00

PATIENT
  Age: 44 Year
  Sex: Male
  Weight: 112 kg

DRUGS (3)
  1. HUMIRA [Suspect]
     Active Substance: ADALIMUMAB
     Indication: PRODUCT USED FOR UNKNOWN INDICATION
     Dosage: 1 PEN
     Route: 058
     Dates: start: 201109, end: 201705
  2. FERVEX [Suspect]
     Active Substance: ACETAMINOPHEN\ASCORBIC ACID\PHENIRAMINE MALEATE
     Indication: NASOPHARYNGITIS
     Route: 048
     Dates: start: 201705
  3. HUMIRA [Suspect]
     Active Substance: ADALIMUMAB
     Dosage: 1 DOSE
     Route: 058
     Dates: start: 201707

REACTIONS (8)
  - Pyrexia [Recovered/Resolved]
  - Henoch-Schonlein purpura [Unknown]
  - Arthralgia [Recovered/Resolved]
  - Hypersensitivity vasculitis [Unknown]
  - Paraesthesia [Not Recovered/Not Resolved]
  - Vascular purpura [Recovered/Resolved]
  - Proteinuria [Recovered/Resolved]
  - Oedema peripheral [Recovered/Resolved]

NARRATIVE: CASE EVENT DATE: 201705
